FAERS Safety Report 21684104 (Version 1)
Quarter: 2022Q4

REPORT INFORMATION
  Report Type: Spontaneous
  Country: US (occurrence: None)
  Receive Date: 20221202
  Receipt Date: 20221202
  Transmission Date: 20230113
  Serious: Yes (Hospitalization)
  Sender: FDA-Public Use
  Company Number: None

PATIENT
  Sex: Female
  Weight: 66.68 kg

DRUGS (1)
  1. CAPECITABINE [Suspect]
     Active Substance: CAPECITABINE
     Indication: Metastases to abdominal cavity
     Dosage: 4T Q12H PO
     Route: 048

REACTIONS (3)
  - Abdominal pain upper [None]
  - Pelvic fluid collection drainage [None]
  - Therapy interrupted [None]
